FAERS Safety Report 6206283-X (Version None)
Quarter: 2009Q2

REPORT INFORMATION
  Report Type: 
  Country: None (occurrence: None)
  Receive Date: 20090528
  Receipt Date: 20090518
  Transmission Date: 20091009
  Serious: Yes (Death, Other)
  Sender: FDA-Public Use
  Company Number: GB-ROCHE-633388

PATIENT
  Age: 52 Year
  Sex: Male

DRUGS (2)
  1. MYCOPHENOLATE MOFETIL [Suspect]
     Route: 065
  2. GLICLAZIDE [Suspect]
     Route: 065

REACTIONS (9)
  - GLAUCOMA [None]
  - HERPES ZOSTER [None]
  - MYELOPATHY [None]
  - OPTIC NEUROPATHY [None]
  - RESPIRATORY FAILURE [None]
  - SPINAL CORD DISORDER [None]
  - THROMBOCYTOPENIA [None]
  - TYPE 2 DIABETES MELLITUS [None]
  - VISUAL IMPAIRMENT [None]
